FAERS Safety Report 4396701-4 (Version None)
Quarter: 2004Q3

REPORT INFORMATION
  Report Type: 
  Country: None (occurrence: None)
  Receive Date: 20040709
  Receipt Date: 20040629
  Transmission Date: 20050211
  Serious: Yes (Death, Hospitalization)
  Sender: FDA-Public Use
  Company Number: 2004EU001306

PATIENT
  Age: 61 Year
  Sex: Male

DRUGS (1)
  1. FK506 (TACROLIMUS CAPSULES) [Suspect]
     Indication: LIVER TRANSPLANT
     Dates: start: 20040201

REACTIONS (2)
  - LUNG DISORDER [None]
  - SEPTIC SHOCK [None]
